FAERS Safety Report 9757546 (Version 61)
Quarter: 2019Q2

REPORT INFORMATION
  Report Type: Report from Study
  Country: CA (occurrence: CA)
  Receive Date: 20131216
  Receipt Date: 20190627
  Transmission Date: 20190711
  Serious: Yes (Life-Threatening, Hospitalization, Other)
  Sender: FDA-Public Use
  Company Number: CA-ROCHE-1104692

PATIENT
  Age: 72 Year
  Sex: Female
  Weight: 60.6 kg

DRUGS (28)
  1. ACTEMRA [Suspect]
     Active Substance: TOCILIZUMAB
     Route: 042
     Dates: start: 20120330
  2. PREDNISONE. [Concomitant]
     Active Substance: PREDNISONE
     Route: 065
     Dates: start: 20140630
  3. ACTEMRA [Suspect]
     Active Substance: TOCILIZUMAB
     Route: 042
     Dates: start: 20130222
  4. METHOTREXATE. [Suspect]
     Active Substance: METHOTREXATE
     Indication: PRODUCT USED FOR UNKNOWN INDICATION
     Route: 065
  5. FOLIC ACID. [Concomitant]
     Active Substance: FOLIC ACID
  6. ACTEMRA [Suspect]
     Active Substance: TOCILIZUMAB
     Route: 042
     Dates: start: 20150807
  7. PLAVIX [Suspect]
     Active Substance: CLOPIDOGREL BISULFATE
     Indication: PRODUCT USED FOR UNKNOWN INDICATION
     Route: 065
     Dates: end: 2015
  8. MOXIFLOXACIN. [Suspect]
     Active Substance: MOXIFLOXACIN
     Indication: PRODUCT USED FOR UNKNOWN INDICATION
     Route: 065
  9. HYDROCHLOROTHIAZIDE. [Suspect]
     Active Substance: HYDROCHLOROTHIAZIDE
     Indication: PRODUCT USED FOR UNKNOWN INDICATION
     Route: 065
  10. VITAMIN D3 [Concomitant]
     Active Substance: CHOLECALCIFEROL
  11. PULMICORT TURBUHALER [Concomitant]
     Active Substance: BUDESONIDE
  12. SPIRIVA [Concomitant]
     Active Substance: TIOTROPIUM BROMIDE MONOHYDRATE
  13. ACTEMRA [Suspect]
     Active Substance: TOCILIZUMAB
     Route: 042
     Dates: start: 20140822
  14. RITUXAN [Suspect]
     Active Substance: RITUXIMAB
     Indication: RHEUMATOID ARTHRITIS
     Dosage: DAY 1, 15
     Route: 042
     Dates: start: 20110214, end: 20110323
  15. THEOPHYLLINE [Concomitant]
     Active Substance: THEOPHYLLINE ANHYDROUS
  16. SYMBICORT [Concomitant]
     Active Substance: BUDESONIDE\FORMOTEROL FUMARATE DIHYDRATE
  17. METOPROLOL. [Concomitant]
     Active Substance: METOPROLOL
     Route: 065
  18. ACTEMRA [Suspect]
     Active Substance: TOCILIZUMAB
     Indication: RHEUMATOID ARTHRITIS
     Route: 042
     Dates: start: 20111021
  19. ACTEMRA [Suspect]
     Active Substance: TOCILIZUMAB
     Route: 042
     Dates: start: 20150918
  20. ACTEMRA [Suspect]
     Active Substance: TOCILIZUMAB
     Route: 042
     Dates: start: 20180608
  21. ASPIRIN [ACETYLSALICYLIC ACID] [Concomitant]
     Active Substance: ASPIRIN
  22. VENTOLIN [Concomitant]
     Active Substance: ALBUTEROL SULFATE
     Route: 065
     Dates: end: 2014
  23. VITAMIN C [Concomitant]
     Active Substance: ASCORBIC ACID
  24. ACTEMRA [Suspect]
     Active Substance: TOCILIZUMAB
     Route: 042
     Dates: start: 20130322
  25. LORAZEPAM. [Concomitant]
     Active Substance: LORAZEPAM
  26. ARTHROTEC FORTE [Concomitant]
     Active Substance: DICLOFENAC SODIUM\MISOPROSTOL
  27. ROSUVASTATIN. [Concomitant]
     Active Substance: ROSUVASTATIN
     Route: 065
  28. PERINDOPRIL [Concomitant]
     Active Substance: PERINDOPRIL
     Route: 065

REACTIONS (53)
  - Weight decreased [Not Recovered/Not Resolved]
  - Nasopharyngitis [Not Recovered/Not Resolved]
  - Lower respiratory tract infection [Unknown]
  - Stress [Unknown]
  - Blood pressure systolic increased [Unknown]
  - Dysphonia [Unknown]
  - Oedema [Unknown]
  - Food allergy [Unknown]
  - Myocardial infarction [Unknown]
  - Tooth abscess [Unknown]
  - Paranasal sinus hypersecretion [Not Recovered/Not Resolved]
  - Sinusitis [Recovering/Resolving]
  - Blood pressure systolic increased [Unknown]
  - Pain in extremity [Unknown]
  - Viral infection [Recovered/Resolved]
  - Lung infection [Unknown]
  - Nasal congestion [Not Recovered/Not Resolved]
  - Weight increased [Unknown]
  - Skin laceration [Not Recovered/Not Resolved]
  - Skin abrasion [Unknown]
  - Fatigue [Unknown]
  - Hyperhidrosis [Unknown]
  - Joint swelling [Not Recovered/Not Resolved]
  - Allergic cough [Not Recovered/Not Resolved]
  - Pharyngitis [Not Recovered/Not Resolved]
  - Cataract [Unknown]
  - Arthralgia [Unknown]
  - Hypertension [Unknown]
  - Cough [Unknown]
  - Sinus pain [Unknown]
  - Peripheral swelling [Not Recovered/Not Resolved]
  - Drug hypersensitivity [Unknown]
  - Blood pressure increased [Unknown]
  - Rales [Unknown]
  - Fatigue [Unknown]
  - Arthritis [Not Recovered/Not Resolved]
  - Localised infection [Not Recovered/Not Resolved]
  - Blood pressure increased [Unknown]
  - Sinusitis [Not Recovered/Not Resolved]
  - Peripheral swelling [Unknown]
  - Infusion related reaction [Unknown]
  - Ear pain [Unknown]
  - Arthralgia [Not Recovered/Not Resolved]
  - Blood pressure fluctuation [Unknown]
  - Chest pain [Not Recovered/Not Resolved]
  - Haemoglobin decreased [Recovering/Resolving]
  - Blood iron decreased [Unknown]
  - Haemorrhage [Unknown]
  - Hypersensitivity [Not Recovered/Not Resolved]
  - Blood pressure diastolic decreased [Unknown]
  - Pain [Recovering/Resolving]
  - Drug ineffective [Unknown]
  - Sleep apnoea syndrome [Unknown]

NARRATIVE: CASE EVENT DATE: 2012
